FAERS Safety Report 6111819-3 (Version None)
Quarter: 2009Q1

REPORT INFORMATION
  Report Type: 
  Country: None (occurrence: None)
  Receive Date: 20090311
  Receipt Date: 20090302
  Transmission Date: 20090719
  Serious: Yes (Other)
  Sender: FDA-Public Use
  Company Number: US-PURDUE-USA_2009_0037253

PATIENT
  Sex: Male

DRUGS (3)
  1. OXYCONTIN [Suspect]
     Indication: PAIN
     Dosage: 15 MG, BID
     Route: 048
     Dates: start: 20081201
  2. INSULIN RAPID                      /00030501/ [Concomitant]
     Indication: DIABETES MELLITUS
     Dosage: UNK, SEE TEXT
  3. HUMULIN N                          /00646001/ [Concomitant]
     Indication: DIABETES MELLITUS
     Dosage: UNK, SEE TEXT

REACTIONS (2)
  - ASTHENIA [None]
  - BLOOD GLUCOSE INCREASED [None]
